FAERS Safety Report 20237257 (Version 1)
Quarter: 2021Q4

REPORT INFORMATION
  Report Type: Spontaneous
  Country: US (occurrence: US)
  Receive Date: 20211228
  Receipt Date: 20211228
  Transmission Date: 20220303
  Serious: Yes (Other)
  Sender: FDA-Public Use
  Company Number: US-MYLANLABS-2021M1095595

PATIENT
  Age: 31 Year
  Sex: Female

DRUGS (1)
  1. ROCURONIUM [Suspect]
     Active Substance: ROCURONIUM BROMIDE
     Indication: Product used for unknown indication
     Dosage: THE MAXIMUM CONTAMINATION OF THE EYE WAS DETERMINED TO BE APPROXIMATELY 50MG...

REACTIONS (5)
  - Facial paresis [Recovered/Resolved]
  - Accidental exposure to product [Recovered/Resolved]
  - Vision blurred [Recovered/Resolved]
  - Discomfort [Recovered/Resolved]
  - Eyelid disorder [Recovered/Resolved]
